FAERS Safety Report 16042594 (Version 1)
Quarter: 2019Q1

REPORT INFORMATION
  Report Type: Spontaneous
  Country: KR (occurrence: KR)
  Receive Date: 20190306
  Receipt Date: 20190306
  Transmission Date: 20190418
  Serious: Yes (Hospitalization, Other)
  Sender: FDA-Public Use
  Company Number: KR-PFIZER INC-2019094211

PATIENT
  Age: 50 Year
  Sex: Male
  Weight: 95 kg

DRUGS (1)
  1. IBUPROFEN. [Suspect]
     Active Substance: IBUPROFEN
     Dosage: 20 DF, UNK

REACTIONS (4)
  - Suicide attempt [Unknown]
  - Overdose [Unknown]
  - Loss of consciousness [Recovered/Resolved]
  - Compartment syndrome [Recovered/Resolved]
